FAERS Safety Report 12318770 (Version 2)
Quarter: 2016Q2

REPORT INFORMATION
  Report Type: Report from Study
  Country: IT (occurrence: IT)
  Receive Date: 20160429
  Receipt Date: 20160510
  Transmission Date: 20160815
  Serious: Yes (Death)
  Sender: FDA-Public Use
  Company Number: IT-ABBVIE-16P-083-1615332-00

PATIENT
  Sex: Female
  Weight: 40 kg

DRUGS (1)
  1. DUODOPA [Suspect]
     Active Substance: CARBIDOPA\LEVODOPA
     Indication: PARKINSON^S DISEASE
     Dosage: MD 4 +3, CR 2,3, ED 2
     Route: 050
     Dates: start: 20090713, end: 20160423

REACTIONS (2)
  - General physical health deterioration [Fatal]
  - Pneumonia [Fatal]
